FAERS Safety Report 9593384 (Version 1)
Quarter: 2013Q4

REPORT INFORMATION
  Report Type: Spontaneous
  Country: US (occurrence: US)
  Receive Date: 20131004
  Receipt Date: 20131004
  Transmission Date: 20140711
  Serious: No
  Sender: FDA-Public Use
  Company Number: US-PURDUE-USA-2012-0089964

PATIENT
  Age: 60 Year
  Sex: Female
  Weight: 72.56 kg

DRUGS (2)
  1. BUTRANS [Suspect]
     Indication: FIBROMYALGIA
     Dosage: 5 MCG/HR, UNK
     Route: 062
     Dates: start: 201206
  2. BUTRANS [Suspect]
     Indication: PAIN
     Dosage: 10 MCG/HR, UNK
     Route: 062
     Dates: start: 201206

REACTIONS (3)
  - Nausea [Recovered/Resolved]
  - Inadequate analgesia [Unknown]
  - Pain [Unknown]
